FAERS Safety Report 11249946 (Version 1)
Quarter: 2015Q3

REPORT INFORMATION
  Report Type: Spontaneous
  Country: US (occurrence: US)
  Receive Date: 20150708
  Receipt Date: 20150708
  Transmission Date: 20151125
  Serious: Yes (Other)
  Sender: FDA-Public Use
  Company Number: US-ELI_LILLY_AND_COMPANY-US201002007084

PATIENT
  Age: 36 Year
  Sex: Male

DRUGS (1)
  1. SYMBYAX [Suspect]
     Active Substance: FLUOXETINE HYDROCHLORIDE\OLANZAPINE
     Dosage: UNK, UNKNOWN
     Route: 065
     Dates: start: 2005, end: 2005

REACTIONS (1)
  - Weight increased [Unknown]

NARRATIVE: CASE EVENT DATE: 200501
